FAERS Safety Report 18849269 (Version 1)
Quarter: 2021Q1

REPORT INFORMATION
  Report Type: Spontaneous
  Country: US (occurrence: US)
  Receive Date: 20210205
  Receipt Date: 20210205
  Transmission Date: 20210419
  Serious: No
  Sender: FDA-Public Use
  Company Number: NVSC2021US022537

PATIENT
  Sex: Female

DRUGS (1)
  1. VIVELLE?DOT [Suspect]
     Active Substance: ESTRADIOL
     Indication: HORMONE REPLACEMENT THERAPY
     Dosage: UNK
     Route: 062

REACTIONS (5)
  - Skin discolouration [Recovered/Resolved]
  - Application site irritation [Unknown]
  - Discomfort [Unknown]
  - Hypersensitivity [Recovered/Resolved]
  - Rash erythematous [Unknown]
